FAERS Safety Report 17770099 (Version 1)
Quarter: 2020Q2

REPORT INFORMATION
  Report Type: Spontaneous
  Country: NP (occurrence: NP)
  Receive Date: 20200512
  Receipt Date: 20200512
  Transmission Date: 20200714
  Serious: Yes (Hospitalization)
  Sender: FDA-Public Use
  Company Number: NP-TORRENT-00000008

PATIENT
  Age: 26 Year
  Sex: Male

DRUGS (1)
  1. AMLODIPINE [Suspect]
     Active Substance: AMLODIPINE BESYLATE
     Indication: HYPERTENSION
     Dosage: INGESTION OF 70 TABLETS OF AMLODIPINE (2.5 MG EACH =175MG IN TOTAL).

REACTIONS (5)
  - Somnolence [Recovering/Resolving]
  - Ocular hyperaemia [Recovering/Resolving]
  - Suicide attempt [Unknown]
  - Abdominal discomfort [Recovering/Resolving]
  - Intentional overdose [Recovering/Resolving]
